FAERS Safety Report 8592192-8 (Version None)
Quarter: 2012Q3

REPORT INFORMATION
  Report Type: 
  Country: None (occurrence: None)
  Receive Date: 20120814
  Receipt Date: 20120802
  Transmission Date: 20120928
  Serious: Yes (Death)
  Sender: FDA-Public Use
  Company Number: IL-CELGENEUS-082-50794-12080246

PATIENT
  Age: 73 Year
  Sex: Female

DRUGS (1)
  1. VIDAZA [Suspect]
     Route: 065

REACTIONS (1)
  - LEUKAEMIA [None]
